FAERS Safety Report 10025542 (Version 1)
Quarter: 2014Q1

REPORT INFORMATION
  Report Type: Spontaneous
  Country: CA (occurrence: CA)
  Receive Date: 20140320
  Receipt Date: 20140320
  Transmission Date: 20141002
  Serious: Yes (Other)
  Sender: FDA-Public Use
  Company Number: CA-PFIZER INC-2014077673

PATIENT
  Age: 6 Year
  Sex: Female

DRUGS (1)
  1. CHILDREN^S ADVIL [Suspect]
     Dosage: UNK
     Route: 048

REACTIONS (1)
  - Eyelid oedema [Unknown]
